FAERS Safety Report 5301794-3 (Version None)
Quarter: 2007Q2

REPORT INFORMATION
  Report Type: 
  Country: None (occurrence: None)
  Receive Date: 20070413
  Receipt Date: 20070413
  Transmission Date: 20071010
  Serious: Yes (Hospitalization, Other)
  Sender: FDA-Public Use
  Company Number: None

PATIENT
  Age: 49 Year
  Sex: Female
  Weight: 51.3 kg

DRUGS (2)
  1. PROTHROMBIN COMPLEX  100 INTERNATIONAL UNIT/ML [Suspect]
     Indication: COLON CANCER
     Dosage: 2060 IU  ONCE  IV
     Route: 042
     Dates: start: 20070308, end: 20070308
  2. PROTHROMBIN COMPLEX  100 INTERNATIONAL UNIT/ML [Suspect]
     Indication: RENAL FAILURE
     Dosage: 2060 IU  ONCE  IV
     Route: 042
     Dates: start: 20070308, end: 20070308

REACTIONS (1)
  - RENAL FAILURE ACUTE [None]
